FAERS Safety Report 21559877 (Version 2)
Quarter: 2022Q4

REPORT INFORMATION
  Report Type: Spontaneous
  Country: US (occurrence: US)
  Receive Date: 20221107
  Receipt Date: 20221116
  Transmission Date: 20230113
  Serious: Yes (Hospitalization, Other)
  Sender: FDA-Public Use
  Company Number: US-APOTEX-2022AP015001

PATIENT
  Age: 56 Year
  Sex: Male

DRUGS (1)
  1. DIVALPROEX SODIUM [Suspect]
     Active Substance: DIVALPROEX SODIUM
     Indication: Mental disorder
     Dosage: UNK
     Route: 048

REACTIONS (9)
  - Intentional overdose [Unknown]
  - Affective disorder [Unknown]
  - Dysphoria [Unknown]
  - Homicidal ideation [Unknown]
  - Drug level above therapeutic [Recovered/Resolved]
  - Suicidal ideation [Unknown]
  - Anxiety [Unknown]
  - Abdominal pain [Unknown]
  - Hyperammonaemia [Recovered/Resolved]
